FAERS Safety Report 5946089-X (Version None)
Quarter: 2008Q4

REPORT INFORMATION
  Report Type: 
  Country: None (occurrence: None)
  Receive Date: 20081110
  Receipt Date: 20081031
  Transmission Date: 20090506
  Serious: Yes (Hospitalization, Other)
  Sender: FDA-Public Use
  Company Number: US-ROCHE-594845

PATIENT
  Sex: Female
  Weight: 63.5 kg

DRUGS (8)
  1. CAPECITABINE [Suspect]
     Indication: COLORECTAL CANCER
     Dosage: 1500 MG IN THE MORNING, 1500 MG IN THE EVENING
     Route: 048
     Dates: start: 20080923
  2. ENALAPRIL MALEATE [Concomitant]
  3. METOPROLOL TARTRATE [Concomitant]
  4. OMEPRAZOLE [Concomitant]
  5. PLAVIX [Concomitant]
  6. SANDOSTATIN [Concomitant]
  7. GINGER [Concomitant]
     Dosage: FORM: PILLS
  8. 1 CONCOMITANT DRUG [Concomitant]
     Dosage: DRUG NAME: NITROSTATIN

REACTIONS (3)
  - BLISTER [None]
  - DIARRHOEA [None]
  - LARGE INTESTINAL ULCER [None]
